FAERS Safety Report 10032115 (Version 1)
Quarter: 2014Q1

REPORT INFORMATION
  Report Type: Spontaneous
  Country: US (occurrence: US)
  Receive Date: 20140324
  Receipt Date: 20140324
  Transmission Date: 20141002
  Serious: Yes (Other)
  Sender: FDA-Public Use
  Company Number: US-PFIZER INC-2014076792

PATIENT
  Sex: Female

DRUGS (1)
  1. TIKOSYN [Suspect]
     Dosage: UNK
     Dates: start: 200905

REACTIONS (4)
  - Electrocardiogram QT prolonged [Unknown]
  - Joint injury [Unknown]
  - Cystitis [Unknown]
  - Onychomycosis [Unknown]
